FAERS Safety Report 9466077 (Version 3)
Quarter: 2015Q2

REPORT INFORMATION
  Report Type: Spontaneous
  Country: US (occurrence: US)
  Receive Date: 20130820
  Receipt Date: 20150518
  Transmission Date: 20150821
  Serious: Yes (Congenital Anomaly, Other)
  Sender: FDA-Public Use
  Company Number: US-ELI_LILLY_AND_COMPANY-US201308004455

PATIENT
  Sex: Female

DRUGS (2)
  1. PRENATAL VITAMINS                  /08195401/ [Concomitant]
  2. PROZAC [Suspect]
     Active Substance: FLUOXETINE HYDROCHLORIDE
     Indication: DEPRESSION
     Dosage: UNK UNK, UNKNOWN
     Route: 064

REACTIONS (8)
  - Heart valve incompetence [Unknown]
  - Mitral valve incompetence [Unknown]
  - Breech presentation [Recovered/Resolved]
  - Foetal exposure during pregnancy [Recovered/Resolved]
  - Oligohydramnios [Unknown]
  - Pulmonary valve stenosis congenital [Unknown]
  - Foetal growth restriction [Unknown]
  - Mitral valve prolapse [Unknown]
